FAERS Safety Report 4677558-0 (Version None)
Quarter: 2005Q2

REPORT INFORMATION
  Report Type: 
  Country: None (occurrence: None)
  Receive Date: 20050526
  Receipt Date: 20050526
  Transmission Date: 20051028
  Serious: Yes (Hospitalization)
  Sender: FDA-Public Use
  Company Number: None

PATIENT
  Age: 64 Year
  Sex: Male
  Weight: 104.3273 kg

DRUGS (15)
  1. NAPROXEN [Suspect]
     Dosage: 500 MG PO BID
     Route: 048
  2. ASPIRIN [Suspect]
     Indication: ISCHAEMIC HEART DISEASE PROPHYLAXIS
     Dosage: 325 MG PO QD AND 81
     Route: 048
  3. ACETAMINOPHEN [Concomitant]
  4. COMBIVENT [Concomitant]
  5. ASCORBIC ACID [Concomitant]
  6. ATENOLOL [Concomitant]
  7. DILTIAZEM [Concomitant]
  8. FOSINOPRIL [Concomitant]
  9. INSULIN [Concomitant]
  10. MISOPROSTOL [Concomitant]
  11. OXYBUTYNIN [Concomitant]
  12. RANITIDINE [Concomitant]
  13. TERAZOSIN [Concomitant]
  14. TRAMADOL [Concomitant]
  15. VITAMIN E [Concomitant]

REACTIONS (6)
  - ABDOMINAL PAIN [None]
  - CHEST PAIN [None]
  - DIARRHOEA [None]
  - HYPOTENSION [None]
  - MELAENA [None]
  - TACHYCARDIA [None]
